FAERS Safety Report 4750288-2 (Version None)
Quarter: 2005Q3

REPORT INFORMATION
  Report Type: 
  Country: None (occurrence: None)
  Receive Date: 20050818
  Receipt Date: 20050806
  Transmission Date: 20060218
  Serious: Yes (Other)
  Sender: FDA-Public Use
  Company Number: 2005112151

PATIENT
  Age: 73 Year
  Sex: Female
  Weight: 67.1324 kg

DRUGS (22)
  1. FRAGMIN [Suspect]
     Indication: ILL-DEFINED DISORDER
     Dosage: 5000 U (1 IN 1 D)
  2. COUMADIN [Concomitant]
  3. DEMEROL [Concomitant]
  4. COREG [Concomitant]
  5. DIOVANE (VALSARTAN) [Concomitant]
  6. GLUCAGAN (GLUCAGON)VOLIN R (INSULIN HUMAN) [Concomitant]
  7. SODIUM BICARBONATE IN PLASTIC CONTAINER [Concomitant]
  8. CATAPRES [Concomitant]
  9. MILK OF MAGNESIA TAB [Concomitant]
  10. ROCEFIN (CEFTRIAXONE SODIUM) [Concomitant]
  11. RISPERDAL [Concomitant]
  12. ATIVAN [Concomitant]
  13. TRAZADONE  (TRAZODONE) [Concomitant]
  14. EFFEXOR [Concomitant]
  15. PENTOXIFYLLINE [Concomitant]
  16. GLUCOTROL [Concomitant]
  17. PLAVIX [Concomitant]
  18. ACETYLSALICYLIC ACID SRT [Concomitant]
  19. MIRALAX [Concomitant]
  20. ZANTAC [Concomitant]
  21. DILANTIN [Concomitant]
  22. DROPERIDOL [Concomitant]

REACTIONS (3)
  - DEEP VEIN THROMBOSIS [None]
  - DIALYSIS [None]
  - RENAL FAILURE [None]
